FAERS Safety Report 14266433 (Version 1)
Quarter: 2017Q4

REPORT INFORMATION
  Report Type: Spontaneous
  Country: US (occurrence: None)
  Receive Date: 20171208
  Receipt Date: 20171208
  Transmission Date: 20180321
  Serious: No
  Sender: FDA-Public Use
  Company Number: None

PATIENT
  Age: 59 Year
  Sex: Female

DRUGS (1)
  1. AZELASTINE, 0.05 % [Suspect]
     Active Substance: AZELASTINE
     Route: 047
     Dates: start: 20171106, end: 20171112

REACTIONS (1)
  - Chemical burns of eye [None]

NARRATIVE: CASE EVENT DATE: 20171112
